FAERS Safety Report 6989486-6 (Version None)
Quarter: 2010Q3

REPORT INFORMATION
  Report Type: 
  Country: None (occurrence: None)
  Receive Date: 20100916
  Receipt Date: 20091212
  Transmission Date: 20110219
  Serious: Yes (Other)
  Sender: FDA-Public Use
  Company Number: FI-PFIZER INC-2009309240

PATIENT
  Sex: Female

DRUGS (3)
  1. LYRICA [Suspect]
     Dosage: 150MG DAILY
     Route: 048
  2. LYRICA [Suspect]
     Dosage: 450MG DAILY
     Route: 048
     Dates: start: 20080101
  3. LIORESAL ^NOVARTIS^ [Concomitant]

REACTIONS (3)
  - ARRHYTHMIA [None]
  - ATRIOVENTRICULAR BLOCK [None]
  - CONDUCTION DISORDER [None]
